FAERS Safety Report 25957427 (Version 1)
Quarter: 2025Q4

REPORT INFORMATION
  Report Type: Spontaneous
  Country: CN (occurrence: CN)
  Receive Date: 20251024
  Receipt Date: 20251024
  Transmission Date: 20260118
  Serious: Yes (Hospitalization)
  Sender: MERCK SHARP & DOHME LLC
  Company Number: CN-009507513-2341044

PATIENT
  Age: 35 Year
  Sex: Female

DRUGS (4)
  1. PEMBROLIZUMAB [Suspect]
     Active Substance: PEMBROLIZUMAB
     Indication: Clear cell endometrial carcinoma
     Dosage: TIME INTERVAL: CYCLICAL
     Dates: start: 2024, end: 2024
  2. PEMBROLIZUMAB [Suspect]
     Active Substance: PEMBROLIZUMAB
     Indication: Clear cell endometrial carcinoma
     Dosage: TIME INTERVAL: CYCLICAL
     Dates: start: 2024
  3. PACLITAXEL [Suspect]
     Active Substance: PACLITAXEL
     Indication: Clear cell endometrial carcinoma
     Dosage: TIME INTERVAL: CYCLICAL
     Dates: start: 2024, end: 2024
  4. CARBOPLATIN [Suspect]
     Active Substance: CARBOPLATIN
     Indication: Clear cell endometrial carcinoma
     Dosage: TIME INTERVAL: CYCLICAL
     Dates: start: 2024, end: 2024

REACTIONS (3)
  - Ureteritis [Recovered/Resolved]
  - Immune-mediated cystitis [Recovered/Resolved]
  - Product use in unapproved indication [Unknown]

NARRATIVE: CASE EVENT DATE: 20240101
